FAERS Safety Report 16159794 (Version 2)
Quarter: 2019Q2

REPORT INFORMATION
  Report Type: Report from Study
  Country: US (occurrence: US)
  Receive Date: 20190404
  Receipt Date: 20190412
  Transmission Date: 20190711
  Serious: Yes (Other)
  Sender: FDA-Public Use
  Company Number: US-GILEAD-2019-0400446

PATIENT
  Age: 71 Year
  Sex: Male

DRUGS (2)
  1. RANOLAZINE. [Suspect]
     Active Substance: RANOLAZINE
     Dosage: 1000 MG, BID
     Route: 048
  2. RANOLAZINE. [Suspect]
     Active Substance: RANOLAZINE
     Indication: ANGINA PECTORIS
     Dosage: 500 MG, QD
     Route: 048

REACTIONS (9)
  - Laryngeal cancer [Recovering/Resolving]
  - Intentional product use issue [Not Recovered/Not Resolved]
  - Thrombosis [Recovering/Resolving]
  - Product use issue [Not Recovered/Not Resolved]
  - Product dose omission [Unknown]
  - Chest pain [Not Recovered/Not Resolved]
  - Influenza [Not Recovered/Not Resolved]
  - Stent placement [Recovering/Resolving]
  - Cardiac pacemaker insertion [Not Recovered/Not Resolved]

NARRATIVE: CASE EVENT DATE: 2019
